FAERS Safety Report 6062108-7 (Version None)
Quarter: 2009Q1

REPORT INFORMATION
  Report Type: 
  Country: None (occurrence: None)
  Receive Date: 20090203
  Receipt Date: 20080403
  Transmission Date: 20090719
  Serious: No
  Sender: FDA-Public Use
  Company Number: US-BAYER-200810540BCC

PATIENT
  Age: 56 Year
  Sex: Female

DRUGS (14)
  1. ASPIRIN [Suspect]
     Indication: DRUG USE FOR UNKNOWN INDICATION
     Route: 065
  2. RIVAROXABAN [Suspect]
     Indication: DRUG USE FOR UNKNOWN INDICATION
     Route: 065
  3. FOLTX [Concomitant]
  4. ACETYLSALICYLIC ACID SRT [Concomitant]
  5. POTASSIUM CHLORIDE [Concomitant]
  6. CALCIUM PLUS VITAMIN D [Concomitant]
  7. NITROGLYCERIN [Concomitant]
  8. ISOSORBIDE MONONITRATE [Concomitant]
  9. PAROXETINE HCL [Concomitant]
  10. NEXIUM [Concomitant]
  11. FLEXERIL [Concomitant]
  12. LISINOPRIL [Concomitant]
  13. TOPROL-XL [Concomitant]
  14. PRAVASTATIN [Concomitant]

REACTIONS (2)
  - DRUG INTERACTION [None]
  - MENTAL STATUS CHANGES [None]
